FAERS Safety Report 24528202 (Version 1)
Quarter: 2024Q4

REPORT INFORMATION
  Report Type: Spontaneous
  Country: US (occurrence: US)
  Receive Date: 20241021
  Receipt Date: 20241021
  Transmission Date: 20250115
  Serious: Yes (Life-Threatening, Hospitalization, Other)
  Sender: Unknown Manufacturer
  Company Number: US-862174955-ML2024-05544

PATIENT
  Age: 57 Year
  Sex: Female

DRUGS (3)
  1. VERAPAMIL HYDROCHLORIDE [Suspect]
     Active Substance: VERAPAMIL HYDROCHLORIDE
     Indication: Hypertension
  2. METOPROLOL [Suspect]
     Active Substance: METOPROLOL
     Indication: Hypertension
  3. LISINOPRIL [Concomitant]
     Active Substance: LISINOPRIL
     Indication: Product used for unknown indication

REACTIONS (1)
  - BRASH syndrome [Recovered/Resolved]
